FAERS Safety Report 20040819 (Version 1)
Quarter: 2021Q4

REPORT INFORMATION
  Report Type: Spontaneous
  Country: PL (occurrence: PL)
  Receive Date: 20211107
  Receipt Date: 20211107
  Transmission Date: 20220303
  Serious: Yes (Hospitalization, Other)
  Sender: FDA-Public Use
  Company Number: PL-SA-2021SA344158

PATIENT
  Age: 64 Year
  Sex: Male

DRUGS (1)
  1. GLIMEPIRIDE [Suspect]
     Active Substance: GLIMEPIRIDE
     Indication: Type 2 diabetes mellitus
     Dosage: UNK(TWO TIMES A DAY) (2 UNK, BID)
     Route: 065

REACTIONS (7)
  - Gaze palsy [Unknown]
  - Neurological symptom [Unknown]
  - Hypoglycaemic encephalopathy [Unknown]
  - Loss of consciousness [Unknown]
  - Quadriparesis [Unknown]
  - Toxicity to various agents [Unknown]
  - Hypoglycaemia [Unknown]
